FAERS Safety Report 13758880 (Version 1)
Quarter: 2017Q3

REPORT INFORMATION
  Report Type: Spontaneous
  Country: US (occurrence: US)
  Receive Date: 20170717
  Receipt Date: 20170717
  Transmission Date: 20171127
  Serious: Yes (Disabling)
  Sender: FDA-Public Use
  Company Number: None

PATIENT
  Sex: Female

DRUGS (4)
  1. OMEPRAZOLE. [Concomitant]
     Active Substance: OMEPRAZOLE
  2. BUSPAR [Suspect]
     Active Substance: BUSPIRONE HYDROCHLORIDE
     Indication: ANXIETY
  3. MUPIROCIN. [Suspect]
     Active Substance: MUPIROCIN
     Indication: SKIN BURNING SENSATION
  4. ANXIETY MEDICATION [Concomitant]
     Active Substance: UNSPECIFIED INGREDIENT

REACTIONS (6)
  - Skin irritation [None]
  - Blister [None]
  - Skin burning sensation [None]
  - Pruritus [None]
  - Hypersensitivity [None]
  - Scar [None]

NARRATIVE: CASE EVENT DATE: 20170417
